FAERS Safety Report 7056594-3 (Version None)
Quarter: 2010Q4

REPORT INFORMATION
  Report Type: 
  Country: None (occurrence: None)
  Receive Date: 20101021
  Receipt Date: 20101018
  Transmission Date: 20110411
  Serious: Yes (Hospitalization)
  Sender: FDA-Public Use
  Company Number: SE-MERCK-1010SWE00017

PATIENT
  Age: 79 Year
  Sex: Female

DRUGS (10)
  1. ZOCOR [Suspect]
     Route: 048
  2. ALENDRONATE SODIUM [Suspect]
     Route: 048
  3. WARAN [Suspect]
     Route: 048
     Dates: start: 20100428, end: 20100626
  4. ASPIRIN [Suspect]
     Route: 048
  5. PREDNISOLON [Suspect]
     Route: 048
  6. ATACAND [Concomitant]
     Route: 048
  7. ACETAMINOPHEN [Concomitant]
     Route: 048
  8. NORMORIX [Concomitant]
     Route: 048
  9. SELOKEN ZOC [Concomitant]
     Route: 048
  10. CALCICHEW D3 [Concomitant]
     Route: 065

REACTIONS (1)
  - GASTROINTESTINAL HAEMORRHAGE [None]
